FAERS Safety Report 13800882 (Version 3)
Quarter: 2017Q3

REPORT INFORMATION
  Report Type: Spontaneous
  Country: US (occurrence: US)
  Receive Date: 20170727
  Receipt Date: 20170919
  Transmission Date: 20171127
  Serious: Yes (Hospitalization)
  Sender: FDA-Public Use
  Company Number: US-VIFOR (INTERNATIONAL) INC.-VIT-2017-07904

PATIENT
  Age: 54 Year
  Sex: Male

DRUGS (23)
  1. VELTASSA [Suspect]
     Active Substance: PATIROMER
     Route: 048
     Dates: start: 20170815
  2. MIRTAZAPINE. [Concomitant]
     Active Substance: MIRTAZAPINE
  3. PREGABALIN. [Concomitant]
     Active Substance: PREGABALIN
  4. THIAMINE HYDROCHLORIDE. [Concomitant]
     Active Substance: THIAMINE HYDROCHLORIDE
  5. VELTASSA [Suspect]
     Active Substance: PATIROMER
     Indication: HYPERKALAEMIA
     Route: 048
     Dates: start: 20170707, end: 201707
  6. CARVEDILOL. [Concomitant]
     Active Substance: CARVEDILOL
  7. SODIUM POLYSTYRENE SULFONATE. [Concomitant]
     Active Substance: SODIUM POLYSTYRENE SULFONATE
  8. RENVELA [Concomitant]
     Active Substance: SEVELAMER CARBONATE
  9. ZYPREXA [Concomitant]
     Active Substance: OLANZAPINE
  10. FAMOTIDINE. [Concomitant]
     Active Substance: FAMOTIDINE
  11. NIFEDIPINE. [Concomitant]
     Active Substance: NIFEDIPINE
  12. RENA-VITE [Concomitant]
     Active Substance: ASCORBIC ACID\BIOTIN\CALCIUM PANTOTHENATE\CYANOCOBALAMIN\FOLIC ACID\NIACINAMIDE\PYRIDOXINE HYDROCHLORIDE\RIBOFLAVIN\THIAMINE MONONITRATE
  13. ARIPIPRAZOLE. [Concomitant]
     Active Substance: ARIPIPRAZOLE
  14. CLONIDINE HYDROCHLORIDE. [Concomitant]
     Active Substance: CLONIDINE HYDROCHLORIDE
  15. LYRICA [Concomitant]
     Active Substance: PREGABALIN
  16. ACIDOPHILUS [Concomitant]
     Active Substance: LACTOBACILLUS ACIDOPHILUS
  17. FOLIC ACID. [Concomitant]
     Active Substance: FOLIC ACID
  18. LASIX [Concomitant]
     Active Substance: FUROSEMIDE
  19. ZOFRAN [Concomitant]
     Active Substance: ONDANSETRON HYDROCHLORIDE
  20. CYMBALTA [Concomitant]
     Active Substance: DULOXETINE HYDROCHLORIDE
  21. NYSTATIN. [Concomitant]
     Active Substance: NYSTATIN
  22. OXYCODONE HYDROCHLORIDE. [Concomitant]
     Active Substance: OXYCODONE HYDROCHLORIDE
  23. NICOTINE. [Concomitant]
     Active Substance: NICOTINE

REACTIONS (6)
  - Hospitalisation [Unknown]
  - Dyspnoea [Unknown]
  - End stage renal disease [Unknown]
  - Hyperkalaemia [Unknown]
  - Hypercalcaemia [Unknown]
  - Respiratory failure [Unknown]

NARRATIVE: CASE EVENT DATE: 2017
